FAERS Safety Report 14264376 (Version 3)
Quarter: 2021Q3

REPORT INFORMATION
  Report Type: Report from Study
  Country: US (occurrence: US)
  Receive Date: 20171208
  Receipt Date: 20210813
  Transmission Date: 20211014
  Serious: No
  Sender: FDA-Public Use
  Company Number: US-JAZZ-2017-US-011705

PATIENT
  Sex: Female

DRUGS (2)
  1. XYREM [Suspect]
     Active Substance: SODIUM OXYBATE
     Indication: NARCOLEPSY
     Dosage: 1.125 GRAM, BID
     Route: 048
     Dates: start: 201709
  2. XYREM [Suspect]
     Active Substance: SODIUM OXYBATE
     Indication: CATAPLEXY

REACTIONS (8)
  - Hypersensitivity [Not Recovered/Not Resolved]
  - Therapeutic response unexpected [Unknown]
  - Bronchitis [Unknown]
  - Respiratory tract congestion [Not Recovered/Not Resolved]
  - Sinusitis [Unknown]
  - Pharyngitis streptococcal [Unknown]
  - Pre-existing condition improved [Unknown]
  - Nasopharyngitis [Unknown]

NARRATIVE: CASE EVENT DATE: 2017
